FAERS Safety Report 4633168-2 (Version None)
Quarter: 2005Q2

REPORT INFORMATION
  Report Type: 
  Country: None (occurrence: None)
  Receive Date: 20050411
  Receipt Date: 20050411
  Transmission Date: 20051028
  Serious: Yes (Hospitalization)
  Sender: FDA-Public Use
  Company Number: None

PATIENT
  Age: 31 Year
  Sex: Female
  Weight: 86.1834 kg

DRUGS (5)
  1. GABITRIL [Suspect]
     Indication: NEURALGIA
     Dosage: 2 TABS 2X/DAY ; ORALLY  (IN THE AM AND BEDTIME)
     Route: 048
     Dates: start: 20041201, end: 20050303
  2. LEXAPRO [Concomitant]
  3. LORTAB [Concomitant]
  4. TYLENOL (CAPLET) [Concomitant]
  5. ADVIL [Concomitant]

REACTIONS (5)
  - CONVULSION [None]
  - DRY MOUTH [None]
  - DYSPNOEA [None]
  - MUSCLE SPASMS [None]
  - MUSCLE TIGHTNESS [None]
